FAERS Safety Report 6128332-X (Version None)
Quarter: 2009Q1

REPORT INFORMATION
  Report Type: 
  Country: None (occurrence: None)
  Receive Date: 20090323
  Receipt Date: 20090316
  Transmission Date: 20090719
  Serious: Yes (Other)
  Sender: FDA-Public Use
  Company Number: B0534521A

PATIENT
  Age: 71 Year
  Sex: Female

DRUGS (11)
  1. SERETIDE [Suspect]
     Indication: ASTHMA
     Dosage: 2PUFF TWICE PER DAY
     Route: 055
  2. VENTOLIN [Suspect]
     Indication: ASTHMA
     Dosage: 100MCG AS REQUIRED
  3. ASPIRIN [Suspect]
     Route: 065
  4. BENDROFLUAZIDE [Suspect]
     Route: 065
  5. SIMVASTATIN [Suspect]
  6. SINGULAIR [Suspect]
     Route: 065
  7. THEOPHYLLINE [Suspect]
     Route: 065
  8. VALSARTAN [Suspect]
     Route: 065
  9. ATROVENT [Suspect]
     Indication: ASTHMA
     Route: 055
  10. BENDROFLUMETHIAZIDE [Suspect]
     Indication: DRUG USE FOR UNKNOWN INDICATION
  11. MIRTAZAPINE [Suspect]
     Dosage: 15MG AT NIGHT

REACTIONS (5)
  - ASTHMA [None]
  - COUGH [None]
  - DEPRESSION [None]
  - DYSPNOEA [None]
  - LOWER RESPIRATORY TRACT INFECTION [None]
